FAERS Safety Report 21871396 (Version 1)
Quarter: 2023Q1

REPORT INFORMATION
  Report Type: Spontaneous
  Country: US (occurrence: None)
  Receive Date: 20230113
  Receipt Date: 20230113
  Transmission Date: 20230417
  Serious: Yes (Hospitalization)
  Sender: FDA-Public Use
  Company Number: None

PATIENT
  Age: 58 Year
  Sex: Female

DRUGS (20)
  1. AMBRISENTAN [Suspect]
     Active Substance: AMBRISENTAN
     Indication: Heritable pulmonary arterial hypertension
     Dosage: FREQUENCY : DAILY;?
     Route: 048
     Dates: start: 20140725
  2. talalafil [Concomitant]
  3. OMEPRAZOLE [Concomitant]
     Active Substance: OMEPRAZOLE
  4. SIMVASTATIN [Concomitant]
     Active Substance: SIMVASTATIN
  5. colchicne [Concomitant]
  6. ZOLPIDEM [Concomitant]
     Active Substance: ZOLPIDEM TARTRATE
  7. FERROUS SULFATE [Concomitant]
     Active Substance: FERROUS SULFATE
  8. MAGNESIUM OXIDE [Concomitant]
     Active Substance: MAGNESIUM OXIDE
  9. POTASSIUM [Concomitant]
     Active Substance: POTASSIUM
  10. FUROSEMIDE [Concomitant]
     Active Substance: FUROSEMIDE
  11. ALBUTEROL SULFATE [Concomitant]
     Active Substance: ALBUTEROL SULFATE
  12. mometasone top oint [Concomitant]
  13. diclofenac top gel [Concomitant]
  14. NARCAN [Concomitant]
     Active Substance: NALOXONE HYDROCHLORIDE
  15. PERCOCET [Concomitant]
     Active Substance: ACETAMINOPHEN\OXYCODONE HYDROCHLORIDE
  16. METOLAZONE [Concomitant]
     Active Substance: METOLAZONE
  17. GLIPIZIDE [Concomitant]
     Active Substance: GLIPIZIDE
  18. EPLERENONE [Concomitant]
     Active Substance: EPLERENONE
  19. ATROVENT [Concomitant]
     Active Substance: IPRATROPIUM BROMIDE
  20. HYDROXYCHLOROQUINE [Concomitant]
     Active Substance: HYDROXYCHLOROQUINE

REACTIONS (2)
  - Hypokalaemia [None]
  - Iron deficiency anaemia [None]

NARRATIVE: CASE EVENT DATE: 20230109
